FAERS Safety Report 19639409 (Version 1)
Quarter: 2021Q3

REPORT INFORMATION
  Report Type: Spontaneous
  Country: US (occurrence: US)
  Receive Date: 20210730
  Receipt Date: 20210730
  Transmission Date: 20211014
  Serious: Yes (Other)
  Sender: FDA-Public Use
  Company Number: US-JNJFOC-20210757511

PATIENT
  Sex: Male

DRUGS (6)
  1. RISPERDAL [Suspect]
     Active Substance: RISPERIDONE
     Dosage: 1 TABLET AT NIGHT TIME
     Route: 048
  2. RISPERDAL [Suspect]
     Active Substance: RISPERIDONE
     Route: 048
     Dates: end: 2010
  3. RISPERDAL [Suspect]
     Active Substance: RISPERIDONE
     Indication: INTELLECTUAL DISABILITY
     Route: 048
  4. RISPERDAL [Suspect]
     Active Substance: RISPERIDONE
     Indication: AUTISM SPECTRUM DISORDER
     Route: 048
  5. RISPERDAL [Suspect]
     Active Substance: RISPERIDONE
     Route: 048
  6. RISPERDAL [Suspect]
     Active Substance: RISPERIDONE
     Dosage: 3?4 NIGHTS
     Route: 048
     Dates: start: 20100624

REACTIONS (2)
  - Increased appetite [Unknown]
  - Obesity [Recovering/Resolving]
